FAERS Safety Report 24829057 (Version 1)
Quarter: 2025Q1

REPORT INFORMATION
  Report Type: Spontaneous
  Country: AU (occurrence: AU)
  Receive Date: 20250110
  Receipt Date: 20250110
  Transmission Date: 20250408
  Serious: Yes (Hospitalization, Other)
  Sender: SANOFI AVENTIS
  Company Number: AU-SA-2025SA004671

PATIENT
  Age: 72 Year
  Sex: Female

DRUGS (13)
  1. ENOXAPARIN SODIUM [Suspect]
     Active Substance: ENOXAPARIN SODIUM
     Indication: Thrombosis
     Dosage: 3 MG, QD
     Route: 058
     Dates: start: 20180807
  2. ENOXAPARIN SODIUM [Suspect]
     Active Substance: ENOXAPARIN SODIUM
     Dosage: 60 MG, BID
  3. TEDUGLUTIDE [Suspect]
     Active Substance: TEDUGLUTIDE
     Indication: Crohn^s disease
  4. TEDUGLUTIDE [Suspect]
     Active Substance: TEDUGLUTIDE
     Indication: Short-bowel syndrome
  5. PANADOL [Concomitant]
     Active Substance: ACETAMINOPHEN
  6. ASCORBIC ACID [Concomitant]
     Active Substance: ASCORBIC ACID
  7. CHOLECALCIFEROL [Concomitant]
     Active Substance: CHOLECALCIFEROL
  8. ENOXAPARIN SODIUM [Concomitant]
     Active Substance: ENOXAPARIN SODIUM
  9. FOLIC ACID [Concomitant]
     Active Substance: FOLIC ACID
  10. PANTOPRAZOLE SODIUM [Concomitant]
     Active Substance: PANTOPRAZOLE SODIUM
  11. PREDNISOLONE [Concomitant]
     Active Substance: PREDNISOLONE
  12. SIMETHICONE (DIMETHICONE) [Concomitant]
     Active Substance: DIMETHICONE
  13. SODIUM CHLORIDE [Concomitant]
     Active Substance: SODIUM CHLORIDE

REACTIONS (23)
  - Femoral neck fracture [Unknown]
  - Peripheral artery thrombosis [Recovered/Resolved]
  - Abdominal discomfort [Not Recovered/Not Resolved]
  - Abdominal distension [Not Recovered/Not Resolved]
  - Abdominal pain [Recovered/Resolved]
  - Blood blister [Unknown]
  - Contusion [Not Recovered/Not Resolved]
  - Diarrhoea [Unknown]
  - Dizziness [Recovered/Resolved]
  - Fatigue [Recovering/Resolving]
  - Flatulence [Unknown]
  - Gastrointestinal sounds abnormal [Unknown]
  - Hunger [Unknown]
  - Increased appetite [Recovering/Resolving]
  - Lethargy [Unknown]
  - Nausea [Not Recovered/Not Resolved]
  - Pain [Unknown]
  - Tooth loss [Unknown]
  - Urine output increased [Recovered/Resolved]
  - Vascular complication associated with device [Unknown]
  - Vomiting [Unknown]
  - Weight decreased [Recovering/Resolving]
  - Headache [Recovered/Resolved]

NARRATIVE: CASE EVENT DATE: 20180801
